FAERS Safety Report 24676951 (Version 1)
Quarter: 2024Q4

REPORT INFORMATION
  Report Type: Report from Study
  Country: CA (occurrence: CA)
  Receive Date: 20241128
  Receipt Date: 20241128
  Transmission Date: 20250115
  Serious: Yes (Death, Other)
  Sender: SANDOZ
  Company Number: CA-SANDOZ-SDZ2024CA098715

PATIENT
  Age: 61 Year
  Sex: Female

DRUGS (3)
  1. WYOST [Suspect]
     Active Substance: DENOSUMAB-BBDZ
     Indication: Metastases to bone
     Dosage: 120MG/1.7ML, Q4W
     Route: 058
     Dates: start: 20241031
  2. WYOST [Suspect]
     Active Substance: DENOSUMAB-BBDZ
     Indication: Non-small cell lung cancer
  3. WYOST [Suspect]
     Active Substance: DENOSUMAB-BBDZ
     Indication: Prophylaxis

REACTIONS (1)
  - Death [Fatal]

NARRATIVE: CASE EVENT DATE: 20241123
